FAERS Safety Report 24746397 (Version 1)
Quarter: 2024Q4

REPORT INFORMATION
  Report Type: Spontaneous
  Country: FR (occurrence: FR)
  Receive Date: 20241218
  Receipt Date: 20241218
  Transmission Date: 20250114
  Serious: Yes (Life-Threatening, Other)
  Sender: CELLTRION
  Company Number: None

PATIENT

DRUGS (6)
  1. RITUXIMAB [Suspect]
     Active Substance: RITUXIMAB
     Indication: Burkitt^s lymphoma
     Dosage: UNK
     Route: 042
     Dates: start: 20240128, end: 20240407
  2. CYTARABINE [Suspect]
     Active Substance: CYTARABINE
     Indication: Burkitt^s lymphoma
     Dosage: 84 MG, 1 TOTAL
     Route: 037
     Dates: start: 20240314, end: 20240419
  3. METHOTREXATE [Suspect]
     Active Substance: METHOTREXATE
     Indication: Burkitt^s lymphoma
     Dosage: 30 MG, 1 TOTAL
     Route: 037
     Dates: start: 20240415, end: 20240415
  4. METHOTREXATE [Suspect]
     Active Substance: METHOTREXATE
     Dosage: 16 MG/M2, 1 TOTAL
     Route: 042
     Dates: start: 20240204, end: 20240224
  5. CYTARABINE [Concomitant]
     Active Substance: CYTARABINE
     Indication: Burkitt^s lymphoma
     Dosage: 12710 MG, 1 TOTAL
     Route: 042
     Dates: start: 20240314, end: 20240419
  6. ETOPOSIDE [Concomitant]
     Active Substance: ETOPOSIDE

REACTIONS (2)
  - Toxic leukoencephalopathy [Recovering/Resolving]
  - Central nervous system enteroviral infection [Recovering/Resolving]

NARRATIVE: CASE EVENT DATE: 20240503
